FAERS Safety Report 17550380 (Version 2)
Quarter: 2020Q2

REPORT INFORMATION
  Report Type: Spontaneous
  Country: US (occurrence: US)
  Receive Date: 20200317
  Receipt Date: 20200413
  Transmission Date: 20200713
  Serious: Yes (Other)
  Sender: FDA-Public Use
  Company Number: US-PFIZER INC-2020114258

PATIENT
  Age: 69 Year
  Sex: Female

DRUGS (2)
  1. XELJANZ XR [Suspect]
     Active Substance: TOFACITINIB CITRATE
     Dosage: 11 MG, UNK
     Dates: start: 201912
  2. METHOTREXATE SODIUM. [Suspect]
     Active Substance: METHOTREXATE SODIUM
     Dosage: UNK, ONCE A WEEK

REACTIONS (6)
  - Malaise [Unknown]
  - Fall [Unknown]
  - Pneumonia [Unknown]
  - Fractured coccyx [Unknown]
  - Rotator cuff syndrome [Unknown]
  - Body height decreased [Unknown]
